FAERS Safety Report 23963164 (Version 1)
Quarter: 2024Q2

REPORT INFORMATION
  Report Type: Spontaneous
  Country: US (occurrence: None)
  Receive Date: 20240610
  Receipt Date: 20240610
  Transmission Date: 20240716
  Serious: No
  Sender: FDA-Public Use
  Company Number: None

PATIENT
  Age: 49 Year
  Sex: Female

DRUGS (2)
  1. CLIMARA [Suspect]
     Active Substance: ESTRADIOL
     Dosage: FREQUENCY : WEEKLY;?
     Route: 061
  2. Estradiol patches [Concomitant]

REACTIONS (3)
  - Application site erythema [None]
  - Application site rash [None]
  - Application site pain [None]

NARRATIVE: CASE EVENT DATE: 20240530
